FAERS Safety Report 8565532-3 (Version None)
Quarter: 2012Q3

REPORT INFORMATION
  Report Type: 
  Country: None (occurrence: None)
  Receive Date: 20120803
  Receipt Date: 20120720
  Transmission Date: 20120928
  Serious: Yes (Hospitalization, Other)
  Sender: FDA-Public Use
  Company Number: US-JNJFOC-20120711728

PATIENT
  Sex: Female
  Weight: 54.43 kg

DRUGS (7)
  1. FENTANYL-100 [Suspect]
     Indication: PAIN
     Route: 062
     Dates: start: 20070101
  2. REMICADE [Suspect]
     Route: 042
     Dates: start: 20020101, end: 20031201
  3. FENTANYL-100 [Suspect]
     Indication: PAIN
     Route: 062
     Dates: start: 20070101
  4. BENTYL [Concomitant]
     Indication: CROHN'S DISEASE
     Route: 048
     Dates: start: 19980101
  5. REMICADE [Suspect]
     Indication: CROHN'S DISEASE
     Route: 042
     Dates: start: 20120717
  6. FENTANYL-100 [Suspect]
     Route: 062
     Dates: start: 20100101
  7. PREDNISONE [Concomitant]
     Indication: CROHN'S DISEASE
     Route: 048

REACTIONS (5)
  - GRAND MAL CONVULSION [None]
  - OEDEMA PERIPHERAL [None]
  - HEADACHE [None]
  - GAIT DISTURBANCE [None]
  - BONE PAIN [None]
